FAERS Safety Report 9138004 (Version 2)
Quarter: 2013Q1

REPORT INFORMATION
  Report Type: Report from Study
  Country: US (occurrence: US)
  Receive Date: 20130304
  Receipt Date: 20130312
  Transmission Date: 20140127
  Serious: Yes (Hospitalization, Other)
  Sender: FDA-Public Use
  Company Number: US-ABBOTT-13P-163-1054686-00

PATIENT
  Age: 66 Year
  Sex: Male

DRUGS (12)
  1. HUMIRA [Suspect]
     Indication: PSORIATIC ARTHROPATHY
     Dates: start: 20111128
  2. ALBUTEROL [Concomitant]
     Indication: DYSPNOEA
     Route: 055
  3. ALBUTEROL [Concomitant]
     Indication: WHEEZING
  4. NORVASC [Concomitant]
     Indication: HYPERTENSION
  5. FOLIC ACID [Concomitant]
     Indication: VITAMIN SUPPLEMENTATION
  6. METHOTREXATE [Concomitant]
     Indication: PSORIATIC ARTHROPATHY
  7. METOPROLOL [Concomitant]
     Indication: HYPERTENSION
  8. METOPROLOL [Concomitant]
     Indication: PALPITATIONS
  9. PROTONIX [Concomitant]
     Indication: DYSPEPSIA
  10. FLOMAX [Concomitant]
     Indication: PROSTATOMEGALY
  11. SYNTHROID [Concomitant]
     Indication: HYPOTHYROIDISM
  12. COZAAR [Concomitant]
     Indication: HYPERTENSION

REACTIONS (8)
  - Convulsion [Not Recovered/Not Resolved]
  - Convulsion [Not Recovered/Not Resolved]
  - Atrial septal defect [Unknown]
  - Dyspnoea [Unknown]
  - Hypothyroidism [Unknown]
  - Psoriatic arthropathy [Unknown]
  - Pain [Unknown]
  - Cardiac disorder [Unknown]
